FAERS Safety Report 6141489-X (Version None)
Quarter: 2009Q2

REPORT INFORMATION
  Report Type: 
  Country: None (occurrence: None)
  Receive Date: 20090402
  Receipt Date: 20090325
  Transmission Date: 20091009
  Serious: Yes (Other)
  Sender: FDA-Public Use
  Company Number: GB-TEVA-158283ISR

PATIENT
  Age: 42 Year
  Sex: Male
  Weight: 79.6 kg

DRUGS (3)
  1. DIAZEPAM [Suspect]
     Indication: PANIC ATTACK
     Dates: start: 20011019, end: 20020704
  2. DIAZEPAM [Suspect]
     Dates: start: 20041202
  3. TEMAZEPAM [Suspect]
     Dates: start: 20020704

REACTIONS (5)
  - DEPRESSION [None]
  - DIABETIC COMA [None]
  - HALLUCINATION, AUDITORY [None]
  - PANIC ATTACK [None]
  - TYPE 1 DIABETES MELLITUS [None]
